FAERS Safety Report 13035058 (Version 1)
Quarter: 2016Q4

REPORT INFORMATION
  Report Type: Spontaneous
  Country: CA (occurrence: CA)
  Receive Date: 20161216
  Receipt Date: 20161216
  Transmission Date: 20170207
  Serious: Yes (Hospitalization)
  Sender: FDA-Public Use
  Company Number: CA-BAYER-2016-234214

PATIENT
  Age: 12 Year
  Sex: Male
  Weight: 52 kg

DRUGS (7)
  1. OMEPRAZOLE. [Concomitant]
     Active Substance: OMEPRAZOLE
  2. NEXAVAR [Suspect]
     Active Substance: SORAFENIB
     Indication: FMS-LIKE TYROSINE KINASE 3 POSITIVE
     Dosage: 200 MG, QD
     Route: 048
  3. CANCIDAS [Concomitant]
     Active Substance: CASPOFUNGIN ACETATE
     Route: 042
  4. VALGANCICLOVIR. [Concomitant]
     Active Substance: VALGANCICLOVIR
  5. NEXAVAR [Suspect]
     Active Substance: SORAFENIB
     Indication: ACUTE MYELOID LEUKAEMIA
  6. GANCICLOVIR. [Concomitant]
     Active Substance: GANCICLOVIR
     Route: 042
  7. CYCLOSPORINE. [Concomitant]
     Active Substance: CYCLOSPORINE

REACTIONS (8)
  - Diarrhoea [Unknown]
  - Bone marrow failure [Unknown]
  - Gastrointestinal inflammation [Unknown]
  - Hypoalbuminaemia [Unknown]
  - Hypophosphataemia [Unknown]
  - Off label use [None]
  - Hypokalaemia [Unknown]
  - Hypomagnesaemia [Unknown]
